FAERS Safety Report 6565117-4 (Version None)
Quarter: 2010Q1

REPORT INFORMATION
  Report Type: 
  Country: None (occurrence: None)
  Receive Date: 20100201
  Receipt Date: 20100127
  Transmission Date: 20100710
  Serious: Yes (Other)
  Sender: FDA-Public Use
  Company Number: A0841693A

PATIENT
  Age: 71 Year
  Sex: Male

DRUGS (3)
  1. COREG [Suspect]
     Dosage: 25MG TWICE PER DAY
     Route: 048
     Dates: start: 20030101
  2. CHEMOTHERAPY [Suspect]
     Indication: COLON CANCER
     Route: 065
  3. HYDROCHLOROTHIAZIDE [Concomitant]

REACTIONS (3)
  - CANCER IN REMISSION [None]
  - TRANSIENT ISCHAEMIC ATTACK [None]
  - TREMOR [None]
